FAERS Safety Report 13462287 (Version 1)
Quarter: 2017Q2

REPORT INFORMATION
  Report Type: Spontaneous
  Country: US (occurrence: US)
  Receive Date: 20170420
  Receipt Date: 20170420
  Transmission Date: 20170830
  Serious: No
  Sender: FDA-Public Use
  Company Number: US-BAUSCH-BL-2016-022525

PATIENT
  Age: 66 Year
  Sex: Female

DRUGS (1)
  1. ARESTIN [Suspect]
     Active Substance: MINOCYCLINE HYDROCHLORIDE
     Indication: PERIODONTAL DISEASE
     Dosage: ADMINISTERED IN 23 SITES
     Route: 050
     Dates: start: 20160913, end: 20160913

REACTIONS (2)
  - Expired product administered [Unknown]
  - No adverse event [Unknown]

NARRATIVE: CASE EVENT DATE: 20160913
